FAERS Safety Report 10952030 (Version 1)
Quarter: 2015Q1

REPORT INFORMATION
  Report Type: Spontaneous
  Country: US (occurrence: None)
  Receive Date: 20150324
  Receipt Date: 20150324
  Transmission Date: 20150721
  Serious: Yes (Other)
  Sender: FDA-Public Use
  Company Number: None

PATIENT
  Age: 50 Year
  Sex: Male
  Weight: 107 kg

DRUGS (3)
  1. ZOFRAN [Concomitant]
     Active Substance: ONDANSETRON HYDROCHLORIDE
  2. EMEND [Suspect]
     Active Substance: APREPITANT
     Indication: PROPHYLAXIS OF NAUSEA AND VOMITING
     Route: 042
     Dates: start: 20150318
  3. DECADRON [Concomitant]
     Active Substance: DEXAMETHASONE

REACTIONS (6)
  - Blood pressure increased [None]
  - Agitation [None]
  - Flushing [None]
  - Back pain [None]
  - Pain in extremity [None]
  - Heart rate increased [None]

NARRATIVE: CASE EVENT DATE: 20150318
